FAERS Safety Report 10062162 (Version 1)
Quarter: 2014Q1

REPORT INFORMATION
  Report Type: Spontaneous
  Country: US (occurrence: None)
  Receive Date: 20140312
  Receipt Date: 20140312
  Transmission Date: 20141002
  Serious: Yes (Other)
  Sender: FDA-Public Use
  Company Number: 1000049351

PATIENT
  Age: 19 Year
  Sex: Male
  Weight: 56.7 kg

DRUGS (7)
  1. SAVELLA [Suspect]
     Indication: FIBROMYALGIA
     Route: 048
     Dates: start: 20130916, end: 20130916
  2. SAVELLA [Suspect]
     Indication: DEPRESSION
     Route: 048
     Dates: start: 20130916, end: 20130916
  3. SAVELLA [Suspect]
     Indication: FIBROMYALGIA
     Dosage: 100 MG (50 MG, 2 IN 1 D),ORAL
     Route: 048
     Dates: start: 20130923, end: 20131001
  4. SAVELLA [Suspect]
     Indication: DEPRESSION
     Dosage: 100 MG (50 MG, 2 IN 1 D),ORAL
     Route: 048
     Dates: start: 20130923, end: 20131001
  5. SAVELLA [Suspect]
     Indication: FIBROMYALGIA
     Route: 048
     Dates: start: 20131003, end: 20131004
  6. SAVELLA [Suspect]
     Indication: DEPRESSION
     Route: 048
     Dates: start: 20131003, end: 20131004
  7. HYDROCODONE (HYDROCODONE) (HYDROCODONE) [Concomitant]

REACTIONS (5)
  - Hypertension [None]
  - Pyrexia [None]
  - Myalgia [None]
  - Chest pain [None]
  - Pain in extremity [None]
